FAERS Safety Report 7504170-8 (Version None)
Quarter: 2011Q2

REPORT INFORMATION
  Report Type: 
  Country: None (occurrence: None)
  Receive Date: 20110525
  Receipt Date: 20110513
  Transmission Date: 20111010
  Serious: Yes (Other)
  Sender: FDA-Public Use
  Company Number: US-ELI_LILLY_AND_COMPANY-US201103002125

PATIENT
  Sex: Female

DRUGS (21)
  1. PLAVIX [Concomitant]
  2. ASPIRIN [Concomitant]
  3. PREVACID [Concomitant]
  4. BUSPAR [Concomitant]
  5. METHOTREXATE [Concomitant]
     Indication: RHEUMATOID ARTHRITIS
  6. VITAMIN D [Concomitant]
  7. SULFASALAZINE [Concomitant]
  8. ALBUTEROL SULFATE AUTOHALER [Concomitant]
  9. LASIX [Concomitant]
  10. FORTEO [Suspect]
     Indication: OSTEOPOROSIS
     Dosage: 20 UG, DAILY (1/D)
     Route: 058
     Dates: start: 20090401
  11. REMERON [Concomitant]
  12. SPIRIVA [Concomitant]
  13. PERCOCET [Concomitant]
  14. COLACE [Concomitant]
  15. CENTRUM [Concomitant]
  16. OXYGEN [Concomitant]
  17. CITALOPRAM HYDROBROMIDE [Concomitant]
  18. MIRALAX [Concomitant]
  19. CALCIUM CARBONATE [Concomitant]
  20. SYMBICORT [Concomitant]
  21. METAMUCIL-2 [Concomitant]

REACTIONS (6)
  - SMALL CELL LUNG CANCER EXTENSIVE STAGE [None]
  - METASTASES TO LIVER [None]
  - HIP FRACTURE [None]
  - FALL [None]
  - BONE LESION [None]
  - METASTASES TO LUNG [None]
